FAERS Safety Report 15282554 (Version 1)
Quarter: 2018Q4

REPORT INFORMATION
  Report Type: Spontaneous
  Country: IT (occurrence: IT)
  Receive Date: 20180816
  Receipt Date: 20180816
  Transmission Date: 20190204
  Serious: Yes (Other)
  Sender: FDA-Public Use
  Company Number: IT-TEVA-2018-IT-941948

PATIENT
  Age: 78 Year
  Sex: Female

DRUGS (3)
  1. PARACETAMOLO DOC GENERICI 1000 MG COMPRESSE [Concomitant]
  2. LINEZOLID TEVA 600 MG COMPRESSE RIVESTITE CON FILM [Suspect]
     Active Substance: LINEZOLID
     Indication: PNEUMONIA
     Dosage: 1200 MILLIGRAM DAILY;
     Route: 048
     Dates: start: 20180709, end: 20180716
  3. LEVOXACIN 500 MG COMPRESSE RIVESTITE CON FILM [Concomitant]
     Route: 048

REACTIONS (3)
  - Malaise [Recovering/Resolving]
  - Vomiting [Recovering/Resolving]
  - Nausea [Recovering/Resolving]

NARRATIVE: CASE EVENT DATE: 20180716
